FAERS Safety Report 11338923 (Version 1)
Quarter: 2015Q3

REPORT INFORMATION
  Report Type: Spontaneous
  Country: US (occurrence: US)
  Receive Date: 20150803
  Receipt Date: 20150803
  Transmission Date: 20151125
  Serious: No
  Sender: FDA-Public Use
  Company Number: US-ELI_LILLY_AND_COMPANY-US200811005448

PATIENT
  Sex: Male
  Weight: 20.41 kg

DRUGS (3)
  1. METHYLPHENIDATE. [Concomitant]
     Active Substance: METHYLPHENIDATE
     Indication: FOETAL ALCOHOL SYNDROME
     Dosage: 15 MG, DAILY (1/D)
     Route: 062
     Dates: start: 200710
  2. STRATTERA [Suspect]
     Active Substance: ATOMOXETINE HYDROCHLORIDE
     Indication: FOETAL ALCOHOL SYNDROME
     Dosage: 18 MG, DAILY (1/D)
     Route: 048
     Dates: start: 200805
  3. FOCALIN [Concomitant]
     Active Substance: DEXMETHYLPHENIDATE HYDROCHLORIDE
     Indication: FOETAL ALCOHOL SYNDROME
     Dosage: 5 MG, DAILY (1/D)
     Route: 065
     Dates: start: 2008

REACTIONS (3)
  - Insomnia [Unknown]
  - Fear [Not Recovered/Not Resolved]
  - Application site reaction [Recovered/Resolved]

NARRATIVE: CASE EVENT DATE: 2008
